FAERS Safety Report 15643207 (Version 3)
Quarter: 2019Q2

REPORT INFORMATION
  Report Type: Spontaneous
  Country: US (occurrence: US)
  Receive Date: 20181121
  Receipt Date: 20190422
  Transmission Date: 20190711
  Serious: Yes (Other)
  Sender: FDA-Public Use
  Company Number: US-SA-2018SA316980

PATIENT
  Age: 54 Year
  Sex: Female
  Weight: 77 kg

DRUGS (7)
  1. PACLITAXEL. [Concomitant]
     Active Substance: PACLITAXEL
  2. ADRIAMYCIN [Concomitant]
     Active Substance: DOXORUBICIN HYDROCHLORIDE
  3. TAXOTERE [Suspect]
     Active Substance: DOCETAXEL
     Indication: BREAST CANCER FEMALE
     Dosage: 20 MG-80 MG
     Route: 042
     Dates: start: 20101123, end: 20101123
  4. GLUCOSAMINE [Concomitant]
     Active Substance: GLUCOSAMINE
  5. NEOSAR [Concomitant]
     Active Substance: CYCLOPHOSPHAMIDE
  6. TAXOL [Concomitant]
     Active Substance: PACLITAXEL
  7. TAXOTERE [Suspect]
     Active Substance: DOCETAXEL
     Dosage: 20 MG-80 MG
     Route: 042
     Dates: start: 20101214, end: 20101214

REACTIONS (2)
  - Psychological trauma [Unknown]
  - Alopecia [Recovering/Resolving]

NARRATIVE: CASE EVENT DATE: 2011
